FAERS Safety Report 19799387 (Version 1)
Quarter: 2021Q3

REPORT INFORMATION
  Report Type: Report from Study
  Country: CA (occurrence: CA)
  Receive Date: 20210907
  Receipt Date: 20210907
  Transmission Date: 20211014
  Serious: Yes (Death, Other)
  Sender: FDA-Public Use
  Company Number: CA-TAIHO ONCOLOGY  INC-EU-2021-01822

PATIENT
  Age: 61 Year
  Sex: Female
  Weight: 40 kg

DRUGS (1)
  1. LONSURF [Suspect]
     Active Substance: TIPIRACIL HYDROCHLORIDE\TRIFLURIDINE
     Indication: COLORECTAL CANCER METASTATIC
     Dosage: CURRENT CYCLE UNKNOWN
     Route: 048
     Dates: start: 20210322, end: 20210613

REACTIONS (4)
  - Terminal state [Unknown]
  - Fatigue [Unknown]
  - Death [Fatal]
  - Disease progression [Unknown]
